FAERS Safety Report 5004437-1 (Version None)
Quarter: 2006Q2

REPORT INFORMATION
  Report Type: 
  Country: None (occurrence: None)
  Receive Date: 20060517
  Receipt Date: 20060510
  Transmission Date: 20061013
  Serious: Yes (Life-Threatening, Hospitalization)
  Sender: FDA-Public Use
  Company Number: DE-ROCHE-447186

PATIENT
  Age: 48 Year
  Sex: Female

DRUGS (4)
  1. MYCOPHENOLATE MOFETIL [Suspect]
     Route: 048
     Dates: start: 20050422, end: 20050510
  2. MYCOPHENOLATE MOFETIL [Suspect]
     Route: 048
     Dates: start: 20050617
  3. FK506 [Suspect]
     Route: 048
     Dates: start: 20050422
  4. FK506 [Suspect]
     Route: 048
     Dates: end: 20050621

REACTIONS (5)
  - ANXIETY [None]
  - PHARYNGEAL OEDEMA [None]
  - PNEUMONIA ASPIRATION [None]
  - RESPIRATORY FAILURE [None]
  - STRIDOR [None]
